FAERS Safety Report 17700571 (Version 2)
Quarter: 2020Q2

REPORT INFORMATION
  Report Type: Spontaneous
  Country: IT (occurrence: IT)
  Receive Date: 20200423
  Receipt Date: 20200430
  Transmission Date: 20200714
  Serious: Yes (Other)
  Sender: FDA-Public Use
  Company Number: IT-MYLANLABS-2020M1041029

PATIENT
  Age: 75 Year
  Sex: Female
  Weight: 115 kg

DRUGS (1)
  1. FONDAPARINUX [Suspect]
     Active Substance: FONDAPARINUX
     Indication: PULMONARY EMBOLISM
     Dosage: 10 MILLIGRAM, QD
     Route: 058
     Dates: start: 20200403, end: 20200404

REACTIONS (3)
  - Abdominal wall haematoma [Recovered/Resolved]
  - Abdominal pain [Recovered/Resolved]
  - Extravasation blood [Recovered/Resolved]

NARRATIVE: CASE EVENT DATE: 20200405
